FAERS Safety Report 22685279 (Version 3)
Quarter: 2025Q1

REPORT INFORMATION
  Report Type: Report from Study
  Country: US (occurrence: US)
  Receive Date: 20230710
  Receipt Date: 20250217
  Transmission Date: 20250409
  Serious: Yes (Other)
  Sender: LEO PHARM
  Company Number: US-LEO Pharma-360519

PATIENT
  Age: 71 Year
  Sex: Female

DRUGS (1)
  1. ADBRY [Suspect]
     Active Substance: TRALOKINUMAB-LDRM
     Indication: Dermatitis atopic
     Dates: end: 20230615

REACTIONS (6)
  - Glaucoma [Unknown]
  - Atrial fibrillation [Unknown]
  - Cough [Unknown]
  - Pruritus [Unknown]
  - Ear dryness [Unknown]
  - Blood pressure abnormal [Unknown]
